FAERS Safety Report 6098221-8 (Version None)
Quarter: 2009Q1

REPORT INFORMATION
  Report Type: 
  Country: None (occurrence: None)
  Receive Date: 20090227
  Receipt Date: 20090212
  Transmission Date: 20090719
  Serious: Yes (Death, Hospitalization)
  Sender: FDA-Public Use
  Company Number: FR-AMGEN-QUU333425

PATIENT
  Sex: Male

DRUGS (17)
  1. NEUPOGEN [Suspect]
     Indication: DRUG USE FOR UNKNOWN INDICATION
     Route: 042
     Dates: start: 20081228, end: 20090129
  2. CYCLOSPORINE [Concomitant]
     Route: 065
     Dates: start: 20090101
  3. UNSPECIFIED MEDICATION [Concomitant]
     Route: 065
     Dates: start: 20090101
  4. ROVAMYCIN [Concomitant]
     Route: 065
     Dates: start: 20090110, end: 20090119
  5. VANCOMYCIN HCL [Concomitant]
     Route: 065
     Dates: start: 20081228, end: 20090119
  6. ZOVIRAX [Concomitant]
     Route: 065
     Dates: start: 20090110, end: 20090119
  7. FORTUM [Concomitant]
     Route: 065
     Dates: start: 20081228
  8. OFLOCET [Concomitant]
     Route: 065
     Dates: start: 20081228
  9. AMBISOME [Concomitant]
     Route: 065
  10. FOLINIC ACID [Concomitant]
     Route: 065
     Dates: start: 20090108
  11. FLAGYL [Concomitant]
     Route: 065
  12. PARACETAMOL [Concomitant]
     Route: 065
  13. CALCIUM GLUCONATE [Concomitant]
     Route: 065
  14. NEXIUM [Concomitant]
     Route: 065
  15. VITAMIN K [Concomitant]
     Route: 065
  16. TAZOCILLINE [Concomitant]
     Route: 065
  17. CANCIDAS [Concomitant]
     Route: 065

REACTIONS (4)
  - CHOLESTASIS [None]
  - LUNG DISORDER [None]
  - NEUTROPENIA [None]
  - PYREXIA [None]
